FAERS Safety Report 6517801-6 (Version None)
Quarter: 2009Q4

REPORT INFORMATION
  Report Type: 
  Country: None (occurrence: None)
  Receive Date: 20091218
  Receipt Date: 20091204
  Transmission Date: 20100525
  Serious: Yes (Hospitalization)
  Sender: FDA-Public Use
  Company Number: 002905

PATIENT
  Sex: Male
  Weight: 63.5 kg

DRUGS (3)
  1. CIMZIA [Suspect]
     Indication: CROHN'S DISEASE
     Dosage: (SUBCUTANEOUS)
     Route: 058
     Dates: start: 20090301
  2. MULTI-VITAMINS [Concomitant]
  3. OXYCODONE [Concomitant]

REACTIONS (6)
  - CONSTIPATION [None]
  - FEELING COLD [None]
  - INJECTION SITE PAIN [None]
  - INTESTINAL FISTULA [None]
  - SEPSIS [None]
  - WEIGHT DECREASED [None]
